FAERS Safety Report 7956047-1 (Version None)
Quarter: 2011Q4

REPORT INFORMATION
  Report Type: 
  Country: None (occurrence: None)
  Receive Date: 20111205
  Receipt Date: 20111129
  Transmission Date: 20120403
  Serious: No
  Sender: FDA-Public Use
  Company Number: US-PFIZER INC-2011293608

PATIENT
  Sex: Female

DRUGS (14)
  1. MULTI-VITAMINS [Concomitant]
     Dosage: UNK
  2. LASIX [Concomitant]
     Dosage: 80 MG, AS NEEDED
     Route: 048
  3. ASPIRIN [Concomitant]
     Dosage: 325 MG, DAILY
  4. ZETIA [Concomitant]
     Indication: BLOOD CHOLESTEROL INCREASED
     Dosage: 10 MG,DAILY
     Route: 048
  5. WELCHOL [Concomitant]
     Indication: BLOOD CHOLESTEROL INCREASED
     Dosage: FOUR TABLETS TWO TIMES A DAY
     Route: 048
  6. HYDROCHLOROTHIAZIDE [Concomitant]
     Indication: DIURETIC THERAPY
     Dosage: 100/25 MG
  7. VOLTAREN [Concomitant]
     Indication: ARTHRALGIA
     Dosage: 75 MG,DAILY
     Route: 048
  8. NEURONTIN [Suspect]
     Indication: MYALGIA
     Dosage: 300 MG, 2X/DAY
     Dates: start: 20110101
  9. RED YEAST RICE [Concomitant]
     Indication: BLOOD CHOLESTEROL INCREASED
     Dosage: 1200 MG, 2X/DAY
  10. FISH OIL [Concomitant]
     Dosage: 1000 MG, 2X/DAY
  11. CELEXA [Concomitant]
     Indication: DEPRESSION
     Dosage: 30 MG,DAILY
     Route: 048
  12. LOPRESSOR [Concomitant]
     Indication: SURGERY
     Dosage: 100 MG, 2X/DAY
  13. IMDUR [Concomitant]
     Indication: ANGINA PECTORIS
     Dosage: 30 MG, 2X/DAY
     Route: 048
  14. CALCIUM [Concomitant]
     Indication: OSTEOPOROSIS
     Dosage: UNKNOWN DOSE TWO TIMES A DAY

REACTIONS (1)
  - DRUG INEFFECTIVE [None]
